FAERS Safety Report 9951834 (Version 2)
Quarter: 2014Q1

REPORT INFORMATION
  Report Type: Spontaneous
  Country: BE (occurrence: BE)
  Receive Date: 20140304
  Receipt Date: 20140328
  Transmission Date: 20141002
  Serious: Yes (Other)
  Sender: FDA-Public Use
  Company Number: BE-ABBVIE-14P-013-1207106-00

PATIENT
  Age: 73 Year
  Sex: Male
  Weight: 75 kg

DRUGS (2)
  1. HUMIRA [Suspect]
     Indication: COLITIS ULCERATIVE
     Route: 058
     Dates: start: 20120401
  2. HUMIRA [Suspect]
     Route: 058

REACTIONS (2)
  - Malignant melanoma [Unknown]
  - Metastases to lymph nodes [Unknown]
